FAERS Safety Report 25626984 (Version 2)
Quarter: 2025Q3

REPORT INFORMATION
  Report Type: Spontaneous
  Country: JP (occurrence: JP)
  Receive Date: 20250731
  Receipt Date: 20250812
  Transmission Date: 20251020
  Serious: No
  Sender: GALDERMA
  Company Number: JP-GALDERMA-JP2025013661

PATIENT

DRUGS (2)
  1. NEMOLIZUMAB [Suspect]
     Active Substance: NEMOLIZUMAB
     Indication: Dermatitis atopic
     Route: 058
     Dates: start: 20250614, end: 20250614
  2. NEMOLIZUMAB [Suspect]
     Active Substance: NEMOLIZUMAB
     Route: 058
     Dates: start: 20250712, end: 20250712

REACTIONS (4)
  - Pyrexia [Recovered/Resolved]
  - Eczema [Unknown]
  - Pruritus [Recovered/Resolved]
  - Effusion [Unknown]

NARRATIVE: CASE EVENT DATE: 20250719
